FAERS Safety Report 21512746 (Version 3)
Quarter: 2022Q4

REPORT INFORMATION
  Report Type: Spontaneous
  Country: CN (occurrence: CN)
  Receive Date: 20221027
  Receipt Date: 20221129
  Transmission Date: 20230112
  Serious: Yes (Death, Other)
  Sender: FDA-Public Use
  Company Number: CN-SUN PHARMACEUTICAL INDUSTRIES LTD-2022R1-360582

PATIENT
  Age: 74 Year
  Sex: Female

DRUGS (4)
  1. BORTEZOMIB [Suspect]
     Active Substance: BORTEZOMIB
     Indication: Chemotherapy
     Dosage: 1.3 MILLIGRAM/SQ. METER ON D1, 4, 8, 11
     Route: 065
     Dates: start: 20200625
  2. DARATUMUMAB [Suspect]
     Active Substance: DARATUMUMAB
     Indication: Chemotherapy
     Dosage: 16 MILLIGRAM/KILOGRAM ON D1, 8, 15, 22
     Route: 065
     Dates: start: 20200625
  3. DEXAMETHASONE [Suspect]
     Active Substance: DEXAMETHASONE
     Indication: Chemotherapy
     Dosage: 20.25 MILLIGRAM ON D1, 2, 8, 9, 15, 16, 22, 23
     Route: 065
     Dates: start: 20200625
  4. DOXORUBICIN [Suspect]
     Active Substance: DOXORUBICIN
     Indication: Chemotherapy
     Dosage: 30 MILLIGRAM/SQ. METER ON D1
     Route: 065
     Dates: start: 20200625

REACTIONS (2)
  - Disease progression [Fatal]
  - Cachexia [Unknown]
